FAERS Safety Report 6021513-5 (Version None)
Quarter: 2008Q4

REPORT INFORMATION
  Report Type: 
  Country: None (occurrence: None)
  Receive Date: 20081229
  Receipt Date: 20081222
  Transmission Date: 20090506
  Serious: Yes (Other)
  Sender: FDA-Public Use
  Company Number: ES-ABBOTT-08P-144-0489448-00

PATIENT
  Age: 54 Year
  Sex: Female

DRUGS (1)
  1. HUMIRA [Suspect]
     Indication: RHEUMATOID ARTHRITIS
     Route: 065
     Dates: start: 20080201, end: 20080901

REACTIONS (5)
  - CHEST DISCOMFORT [None]
  - MYALGIA [None]
  - OEDEMA PERIPHERAL [None]
  - PLANTAR FASCIITIS [None]
  - SKIN EXFOLIATION [None]
